FAERS Safety Report 19036397 (Version 1)
Quarter: 2021Q1

REPORT INFORMATION
  Report Type: Spontaneous
  Country: US (occurrence: US)
  Receive Date: 20210320
  Receipt Date: 20210320
  Transmission Date: 20210420
  Serious: No
  Sender: FDA-Public Use
  Company Number: None

PATIENT
  Age: 19 Year
  Sex: Female
  Weight: 67.5 kg

DRUGS (10)
  1. HUMALOG [Concomitant]
     Active Substance: INSULIN LISPRO
  2. METOPROLOL ER [Concomitant]
     Active Substance: METOPROLOL SUCCINATE
  3. VITAMIN B12 [Concomitant]
     Active Substance: CYANOCOBALAMIN
  4. ZINC. [Concomitant]
     Active Substance: ZINC
  5. KYLEENA [Concomitant]
     Active Substance: LEVONORGESTREL
  6. VITAMIN D [Concomitant]
     Active Substance: VITAMIN D NOS
  7. CINNAMON EXTRACT [Concomitant]
  8. METHYLPHENIDATE. [Suspect]
     Active Substance: METHYLPHENIDATE
     Indication: ATTENTION DEFICIT HYPERACTIVITY DISORDER
     Dosage: ?          QUANTITY:30 TABLET(S);?
     Route: 048
  9. FLUVOXAMINE [Concomitant]
     Active Substance: FLUVOXAMINE
  10. NORETHINDRONE. [Concomitant]
     Active Substance: NORETHINDRONE

REACTIONS (8)
  - Hypertension [None]
  - Panic attack [None]
  - Reynold^s syndrome [None]
  - Cyanosis [None]
  - Aggression [None]
  - Hyperhidrosis [None]
  - Syncope [None]
  - Nail bed disorder [None]
